FAERS Safety Report 13230554 (Version 2)
Quarter: 2017Q1

REPORT INFORMATION
  Report Type: Report from Study
  Country: GB (occurrence: GB)
  Receive Date: 20170214
  Receipt Date: 20170220
  Transmission Date: 20170428
  Serious: Yes (Death, Other)
  Sender: FDA-Public Use
  Company Number: GB-GLAXOSMITHKLINE-GB2017GSK019611

PATIENT
  Age: 2 Year
  Sex: Male
  Weight: 11 kg

DRUGS (2)
  1. ZANAMIVIR [Suspect]
     Active Substance: ZANAMIVIR
     Indication: PROPHYLAXIS
     Dosage: UNK
  2. TAMIFLU [Concomitant]
     Active Substance: OSELTAMIVIR PHOSPHATE

REACTIONS (1)
  - Cardiac arrest [Fatal]

NARRATIVE: CASE EVENT DATE: 20170130
